FAERS Safety Report 7393209-9 (Version None)
Quarter: 2011Q2

REPORT INFORMATION
  Report Type: 
  Country: None (occurrence: None)
  Receive Date: 20110405
  Receipt Date: 20110322
  Transmission Date: 20111010
  Serious: Yes (Other)
  Sender: FDA-Public Use
  Company Number: NL-AMGEN-NLDSP2011012322

PATIENT
  Age: 54 Year
  Sex: Female

DRUGS (3)
  1. ENBREL [Suspect]
     Indication: PSORIATIC ARTHROPATHY
     Dosage: 50 MG, 2X/WEEK
     Dates: start: 20110102
  2. ARAVA [Concomitant]
     Indication: PSORIATIC ARTHROPATHY
     Dosage: 20 MG, UNK
     Route: 048
     Dates: start: 20100801
  3. ARCOXIA [Concomitant]
     Indication: PSORIATIC ARTHROPATHY
     Dosage: 90 MG, UNK
     Route: 048
     Dates: start: 20100701

REACTIONS (7)
  - DEPRESSED MOOD [None]
  - INJECTION SITE ERYTHEMA [None]
  - PRURITUS GENERALISED [None]
  - ADVERSE DRUG REACTION [None]
  - CONTUSION [None]
  - FATIGUE [None]
  - INJECTION SITE PRURITUS [None]
